FAERS Safety Report 5752009-3 (Version None)
Quarter: 2008Q2

REPORT INFORMATION
  Report Type: 
  Country: None (occurrence: None)
  Receive Date: 20080527
  Receipt Date: 20080515
  Transmission Date: 20081010
  Serious: Yes (Hospitalization)
  Sender: FDA-Public Use
  Company Number: 2008BI010844

PATIENT
  Age: 44 Year
  Sex: Female

DRUGS (1)
  1. TYSABRI [Suspect]
     Indication: MULTIPLE SCLEROSIS
     Dosage: 300 MG QM IV
     Route: 042
     Dates: start: 20080208, end: 20080101

REACTIONS (4)
  - BLOOD POTASSIUM DECREASED [None]
  - DIARRHOEA [None]
  - GASTROENTERITIS [None]
  - LIVER FUNCTION TEST ABNORMAL [None]
